FAERS Safety Report 18398864 (Version 3)
Quarter: 2020Q4

REPORT INFORMATION
  Report Type: Spontaneous
  Country: US (occurrence: US)
  Receive Date: 20201019
  Receipt Date: 20201111
  Transmission Date: 20210114
  Serious: No
  Sender: FDA-Public Use
  Company Number: US-MYLANLABS-2020M1085965

PATIENT
  Age: 89 Year
  Sex: Female
  Weight: 54.88 kg

DRUGS (3)
  1. ESTRADIOL VAGINAL CREAM USP [Suspect]
     Active Substance: ESTRADIOL
     Indication: BLADDER DISCOMFORT
     Dosage: MON, WED., FRI. AT BEDTIME
     Route: 067
     Dates: start: 202004
  2. TYLENOL [Concomitant]
     Active Substance: ACETAMINOPHEN
  3. ESTRADIOL VAGINAL CREAM USP [Suspect]
     Active Substance: ESTRADIOL
     Indication: URINARY TRACT INFECTION

REACTIONS (3)
  - Off label use [Unknown]
  - Product container issue [Unknown]
  - Device difficult to use [Unknown]

NARRATIVE: CASE EVENT DATE: 202004
